FAERS Safety Report 19586489 (Version 1)
Quarter: 2021Q3

REPORT INFORMATION
  Report Type: Spontaneous
  Country: PL (occurrence: PL)
  Receive Date: 20210721
  Receipt Date: 20210721
  Transmission Date: 20211014
  Serious: Yes (Other)
  Sender: FDA-Public Use
  Company Number: PL-SA-2021SA207193

PATIENT
  Age: 88 Year
  Sex: Male

DRUGS (9)
  1. NEUROVIT [THIAMINE HYDROCHLORIDE] [Concomitant]
     Dosage: ONGOING
  2. ACARD [ACETYLSALICYLIC ACID] [Concomitant]
     Active Substance: ASPIRIN
     Dosage: ONGOING
  3. TRITACE [Concomitant]
     Active Substance: RAMIPRIL
     Dosage: ONGOING
  4. METFORMAX [Concomitant]
     Active Substance: METFORMIN HYDROCHLORIDE
     Dosage: ONGOING
  5. ATORVASTATIN [ATORVASTATIN CALCIUM] [Concomitant]
     Active Substance: ATORVASTATIN CALCIUM
     Dosage: ONGOING
  6. PROSCAR [Concomitant]
     Active Substance: FINASTERIDE
     Dosage: ONGOING
  7. POLVERTIC [Concomitant]
     Dosage: ONGOING
  8. OMNIC OCA [Suspect]
     Active Substance: TAMSULOSIN HYDROCHLORIDE
     Indication: BENIGN PROSTATIC HYPERPLASIA
     Dosage: 0.4 MG, ONCE DAILY (BEFORE SLEEP)
     Route: 048
  9. ANTIPROST [Concomitant]
     Dosage: UNK

REACTIONS (11)
  - Inappropriate schedule of product administration [Unknown]
  - Swollen tongue [Not Recovered/Not Resolved]
  - Hypoacusis [Unknown]
  - Vascular injury [Not Recovered/Not Resolved]
  - Condition aggravated [Not Recovered/Not Resolved]
  - Epistaxis [Unknown]
  - Pharyngeal swelling [Not Recovered/Not Resolved]
  - Ear haemorrhage [Unknown]
  - Erythema [Not Recovered/Not Resolved]
  - Blood pressure decreased [Not Recovered/Not Resolved]
  - Visual impairment [Unknown]
